FAERS Safety Report 23364957 (Version 2)
Quarter: 2024Q1

REPORT INFORMATION
  Report Type: Spontaneous
  Country: US (occurrence: US)
  Receive Date: 20240104
  Receipt Date: 20240215
  Transmission Date: 20240410
  Serious: Yes (Other)
  Sender: FDA-Public Use
  Company Number: US-TEVA-VS-3139529

PATIENT
  Age: 36 Year
  Sex: Male

DRUGS (2)
  1. CLOBETASOL [Suspect]
     Active Substance: CLOBETASOL
     Indication: Lichen sclerosus
     Route: 061
     Dates: start: 2022
  2. TACROLIMUS [Concomitant]
     Active Substance: TACROLIMUS
     Indication: Lichen sclerosus
     Route: 065

REACTIONS (1)
  - Central serous chorioretinopathy [Recovering/Resolving]

NARRATIVE: CASE EVENT DATE: 20220101
